FAERS Safety Report 10066298 (Version 1)
Quarter: 2014Q2

REPORT INFORMATION
  Report Type: Spontaneous
  Country: US (occurrence: US)
  Receive Date: 20140408
  Receipt Date: 20140408
  Transmission Date: 20141212
  Serious: Yes (Other)
  Sender: FDA-Public Use
  Company Number: US-ABBVIE-14P-163-1220724-00

PATIENT
  Sex: Male

DRUGS (2)
  1. DEPAKOTE [Suspect]
     Indication: EXPOSURE VIA BODY FLUID
     Route: 050
  2. DEPAKOTE [Suspect]
     Indication: FOETAL EXPOSURE DURING PREGNANCY
     Route: 064

REACTIONS (3)
  - Congenital hydrocephalus [Recovering/Resolving]
  - Foetal exposure during pregnancy [Unknown]
  - Paternal drugs affecting foetus [Unknown]
